FAERS Safety Report 25968837 (Version 1)
Quarter: 2025Q4

REPORT INFORMATION
  Report Type: Spontaneous
  Country: EU (occurrence: EU)
  Receive Date: 20251028
  Receipt Date: 20251028
  Transmission Date: 20260118
  Serious: Yes (Hospitalization, Other)
  Sender: AUROBINDO
  Company Number: EU-SANDOZ-SDZ2025FR074283

PATIENT
  Age: 72 Year
  Sex: Male

DRUGS (3)
  1. PAROXETINE [Suspect]
     Active Substance: PAROXETINE
     Indication: Depression
     Dosage: 20 MILLIGRAM, ONCE A DAY
     Route: 065
  2. LANSOPRAZOLE [Suspect]
     Active Substance: LANSOPRAZOLE
     Indication: Depression
     Dosage: 30 MILLIGRAM, ONCE A DAY (30 MG, QD, (INITIATED 40 DAYS PRIOR TO THE EVENT)
     Route: 065
  3. SERTRALINE [Suspect]
     Active Substance: SERTRALINE HYDROCHLORIDE
     Indication: Depression
     Dosage: 50 MILLIGRAM, ONCE A DAY
     Route: 065

REACTIONS (4)
  - Agranulocytosis [Unknown]
  - White blood cell count decreased [Unknown]
  - Toxicity to various agents [Unknown]
  - Drug ineffective [Unknown]
